FAERS Safety Report 26154302 (Version 1)
Quarter: 2025Q4

REPORT INFORMATION
  Report Type: Spontaneous
  Country: CN (occurrence: CN)
  Receive Date: 20251215
  Receipt Date: 20251215
  Transmission Date: 20260118
  Serious: Yes (Hospitalization, Other)
  Sender: Sanaluz
  Company Number: CN-SANALUZ LLC-2025SAL000007

PATIENT
  Age: 19 Year
  Sex: Male
  Weight: 70 kg

DRUGS (12)
  1. CYCLOSERINE [Suspect]
     Active Substance: CYCLOSERINE
     Indication: Tuberculosis
     Dosage: 250 MILLIGRAM, BID
     Route: 048
     Dates: start: 20230213
  2. CYCLOSERINE [Suspect]
     Active Substance: CYCLOSERINE
     Dosage: 250 MILLIGRAM, BID
     Route: 048
  3. BEDAQUILINE [Suspect]
     Active Substance: BEDAQUILINE
     Indication: Tuberculosis
     Dosage: 400 MILLIGRAM, QD,TAKEN AS 200 MG/TIME WITH 3 TIMES PER WEEK AFTER 14 DAYS
     Route: 048
     Dates: start: 20230213
  4. BEDAQUILINE [Suspect]
     Active Substance: BEDAQUILINE
     Dosage: 200 MILLIGRAM, 3 TIMES A WEEK
     Route: 048
  5. LINEZOLID [Suspect]
     Active Substance: LINEZOLID
     Indication: Tuberculosis
     Dosage: 600 MILLIGRAM, QD
     Route: 048
     Dates: start: 20230213
  6. CLOFAZIMINE [Suspect]
     Active Substance: CLOFAZIMINE
     Indication: Tuberculosis
     Dosage: 100 MILLIGRAM, QD
     Route: 048
     Dates: start: 20230213
  7. CLOFAZIMINE [Suspect]
     Active Substance: CLOFAZIMINE
     Dosage: 100 MILLIGRAM, QD
     Route: 048
  8. ETHAMBUTOL [Suspect]
     Active Substance: ETHAMBUTOL HYDROCHLORIDE
     Indication: Tuberculosis
     Dosage: 0.75 GRAM, QD
     Route: 048
     Dates: start: 20230213
  9. ETHAMBUTOL [Suspect]
     Active Substance: ETHAMBUTOL HYDROCHLORIDE
     Dosage: 1 GRAM, QD
     Route: 048
  10. PYRAZINAMIDE [Suspect]
     Active Substance: PYRAZINAMIDE
     Indication: Tuberculosis
     Dosage: 0.5 GRAM, TID
     Route: 048
     Dates: start: 20230213
  11. AMIKACIN [Suspect]
     Active Substance: AMIKACIN
     Indication: Tuberculosis
     Dosage: 0.6 GRAM
     Route: 030
     Dates: start: 20230213
  12. VITAMIN B6 [Concomitant]
     Active Substance: PYRIDOXINE HYDROCHLORIDE
     Indication: Tuberculosis
     Dosage: 50 MILLIGRAM, BID
     Route: 065
     Dates: start: 20230213

REACTIONS (1)
  - Drug-induced liver injury [Recovered/Resolved]
